FAERS Safety Report 9123357 (Version 1)
Quarter: 2013Q1

REPORT INFORMATION
  Report Type: Spontaneous
  Country: MX (occurrence: MX)
  Receive Date: 20130227
  Receipt Date: 20130227
  Transmission Date: 20140127
  Serious: Yes (Hospitalization, Other)
  Sender: FDA-Public Use
  Company Number: PHHY2013MX018233

PATIENT
  Age: 66 Year
  Sex: Female

DRUGS (6)
  1. GALVUS MET [Suspect]
     Indication: DIABETES MELLITUS
     Dosage: UNK UKN, UNK
     Dates: start: 200901, end: 201302
  2. CO-DIOVAN [Suspect]
     Indication: HYPERTENSION
     Dosage: UNK UKN, DAILY
     Dates: start: 201105
  3. COAPROVEL [Concomitant]
     Indication: HYPERTENSION
     Dosage: UNK UKN, UNK
     Dates: start: 201302
  4. CIPROFLOXACIN [Concomitant]
     Indication: URINARY TRACT INFECTION
     Dosage: UNK UKN, UNK
     Dates: start: 201302
  5. PANTOPRAZOLE [Concomitant]
     Indication: GASTRITIS
     Dosage: UNK UKN, UNK
     Dates: start: 201302
  6. METOCLOPRAMIDE [Concomitant]
     Dosage: UNK UKN, UNK
     Dates: start: 201302

REACTIONS (3)
  - Blood potassium decreased [Recovered/Resolved]
  - Blood sodium decreased [Recovered/Resolved]
  - Blood pressure increased [Recovered/Resolved]
